FAERS Safety Report 5639848-4 (Version None)
Quarter: 2008Q1

REPORT INFORMATION
  Report Type: 
  Country: None (occurrence: None)
  Receive Date: 20080227
  Receipt Date: 20080218
  Transmission Date: 20080703
  Serious: Yes (Hospitalization)
  Sender: FDA-Public Use
  Company Number: DE-WYE-G01073708

PATIENT
  Sex: Female

DRUGS (9)
  1. TREVILOR RETARD [Suspect]
     Dosage: 14 CAPSULES (OVERDOSE AMOUNT 2100 MG)
     Route: 048
     Dates: start: 20080215, end: 20080215
  2. L-THYROXIN [Suspect]
     Dosage: 7 TABLETS (OVERDOSE AMOUNT UNKNOWN)
     Route: 048
     Dates: start: 20080215, end: 20080215
  3. LAMOTRIGINE [Suspect]
     Dosage: 7 TABLETS (OVERDOSE AMOUNT 1400 MG)
     Route: 048
     Dates: start: 20080215, end: 20080215
  4. TRUXAL [Suspect]
     Dosage: 7 TABLETS (OVERDOSE AMOUNT UNKNOWN)
     Route: 048
     Dates: start: 20080215, end: 20080215
  5. LEVOMEPROMAZINE [Suspect]
     Dosage: 7 TABLETS (OVERDOSE AMOUNT UNKNOWN)
     Route: 048
     Dates: start: 20080215, end: 20080215
  6. REMERGIL [Suspect]
     Dosage: 7 TABLETS (OVERDOSE AMOUTN 210 MG)
     Route: 048
     Dates: start: 20080215, end: 20080215
  7. SIMVASTATIN [Suspect]
     Dosage: 7 TABLETS (OVERDOSE AMOUNT 140 MG)
     Route: 048
     Dates: start: 20080215, end: 20080215
  8. CLIMOPAX [Suspect]
     Dosage: 7 TABLETS (OVERDOSE AMOUNT 4.375 MG / 35 MG)
     Route: 048
     Dates: start: 20080215, end: 20080215
  9. LASIX [Suspect]
     Dosage: 7 TABLETS (OVERDOSE AMOUNT 280 MG)
     Route: 048
     Dates: start: 20080215, end: 20080215

REACTIONS (3)
  - INTENTIONAL OVERDOSE [None]
  - SUICIDE ATTEMPT [None]
  - VOMITING [None]
